FAERS Safety Report 7690434 (Version 3)
Quarter: 2013Q3

REPORT INFORMATION
  Report Type: Report from Study
  Country: UG (occurrence: UG)
  Receive Date: 20101202
  Receipt Date: 20130719
  Transmission Date: 20140515
  Serious: Yes (Hospitalization, Other)
  Sender: FDA-Public Use
  Company Number: UG-ABBOTT-10P-165-0687773-00

PATIENT
  Sex: Male

DRUGS (8)
  1. ALUVIA TABLETS [Suspect]
     Indication: HIV INFECTION
     Route: 048
     Dates: start: 20100727, end: 20100824
  2. RALTEGRAVIR [Concomitant]
     Indication: HIV INFECTION
     Dates: start: 20100727, end: 20100824
  3. COTRIMOXAZOLE [Concomitant]
     Indication: PRODUCT USED FOR UNKNOWN INDICATION
     Dates: start: 20060922
  4. NEVIRAPINE [Concomitant]
     Indication: PRODUCT USED FOR UNKNOWN INDICATION
     Dates: start: 20070112, end: 20100726
  5. LAMIVUDINE [Concomitant]
     Indication: HIV INFECTION
     Dates: start: 20070112, end: 20100726
  6. LAMIVUDINE [Concomitant]
  7. TENOFOVIR [Concomitant]
     Indication: HIV INFECTION
  8. ZIDOVUDINE [Concomitant]
     Indication: PRODUCT USED FOR UNKNOWN INDICATION
     Dates: start: 20080616, end: 20100726

REACTIONS (6)
  - Hypotension [Recovered/Resolved]
  - Oral candidiasis [Recovering/Resolving]
  - Rash maculo-papular [Recovered/Resolved]
  - Conjunctivitis [Recovered/Resolved]
  - Oral candidiasis [Recovered/Resolved]
  - Oesophageal candidiasis [Recovering/Resolving]
